FAERS Safety Report 21382014 (Version 1)
Quarter: 2022Q3

REPORT INFORMATION
  Report Type: Spontaneous
  Country: PL (occurrence: PL)
  Receive Date: 20220927
  Receipt Date: 20220927
  Transmission Date: 20221027
  Serious: Yes (Hospitalization, Other)
  Sender: FDA-Public Use
  Company Number: None

PATIENT
  Age: 71 Year
  Sex: Female

DRUGS (6)
  1. MIANSERIN [Suspect]
     Active Substance: MIANSERIN
     Indication: Depression
     Dosage: 10 MILLIGRAM
     Route: 065
  2. MIANSERIN [Suspect]
     Active Substance: MIANSERIN
     Dosage: 30 MILLIGRAM, QD
     Route: 065
  3. OMEPRAZOLE [Suspect]
     Active Substance: OMEPRAZOLE
     Indication: Product used for unknown indication
     Dosage: 20 MILLIGRAM
     Route: 065
  4. ATORVASTATIN [Suspect]
     Active Substance: ATORVASTATIN
     Indication: Product used for unknown indication
     Dosage: 20 MILLIGRAM
     Route: 065
  5. VERAPAMIL [Suspect]
     Active Substance: VERAPAMIL HYDROCHLORIDE
     Indication: Product used for unknown indication
     Dosage: 120 MILLIGRAM
     Route: 065
  6. DABIGATRAN [Suspect]
     Active Substance: DABIGATRAN
     Indication: Product used for unknown indication
     Dosage: 150 MILLIGRAM
     Route: 065

REACTIONS (12)
  - Suicidal ideation [Recovered/Resolved]
  - Blood thyroid stimulating hormone increased [Unknown]
  - Free thyroxine index decreased [Unknown]
  - Hallucination, auditory [Recovered/Resolved]
  - Drug ineffective for unapproved indication [Unknown]
  - Haemoglobin decreased [Unknown]
  - Decreased appetite [Recovered/Resolved]
  - Depressive symptom [Recovered/Resolved]
  - Hallucination [Recovered/Resolved]
  - Sleep disorder [Recovered/Resolved]
  - Dissociation [Recovered/Resolved]
  - Therapeutic product effect incomplete [Unknown]
